FAERS Safety Report 17812716 (Version 3)
Quarter: 2021Q1

REPORT INFORMATION
  Report Type: Spontaneous
  Country: GB (occurrence: GB)
  Receive Date: 20200521
  Receipt Date: 20210106
  Transmission Date: 20210419
  Serious: Yes (Other)
  Sender: FDA-Public Use
  Company Number: GB-VERTEX PHARMACEUTICALS-2020-011298

PATIENT
  Age: 11 Year
  Sex: Male

DRUGS (15)
  1. COLOMYCIN [COLISTIN SULFATE] [Concomitant]
     Active Substance: COLISTIN SULFATE
     Dosage: 2 MILLI?INTERNATIONAL UNIT, BID (ALTERNATING WITH TOBRAMYCIN )
  2. FLUCLOXACILLIN [Concomitant]
     Active Substance: FLUCLOXACILLIN
     Indication: PROPHYLAXIS
     Dosage: 500 MG, BID
  3. CREON [Concomitant]
     Active Substance: PANCRELIPASE AMYLASE\PANCRELIPASE LIPASE\PANCRELIPASE PROTEASE
     Dosage: 8 SCOOPS IN NIGHT AND 8 SCOOPS IN DAYTIME
  4. SALINE [SODIUM CHLORIDE] [Concomitant]
     Active Substance: SODIUM CHLORIDE
     Dosage: 4 MILLILITER, QD (IN THE MIDDLE OF THE DAY )
  5. BUCCOLAM [Concomitant]
     Active Substance: MIDAZOLAM HYDROCHLORIDE
     Indication: SEIZURE
     Dosage: 10 MG, PRN
  6. DOMPERIDONE [Concomitant]
     Active Substance: DOMPERIDONE
  7. DEOXYRIBONUCLEASE HUMAN [Concomitant]
     Dosage: 2.5 MG, QD, NEBULISED
  8. ALIMEMAZINE [Concomitant]
     Active Substance: TRIMEPRAZINE
     Dosage: 0.5 MILLILITER, QD (IN NIGHT) (30 MGS IN 5 MLS)
  9. BACLOFEN. [Concomitant]
     Active Substance: BACLOFEN
     Dosage: 3 MILLILITER, QD (AT NIGHT)
  10. ORKAMBI [Suspect]
     Active Substance: IVACAFTOR\LUMACAFTOR
     Indication: CYSTIC FIBROSIS
     Dosage: 2 DOSAGE FORM, BID
     Route: 048
     Dates: start: 202003, end: 202005
  11. CREON [Concomitant]
     Active Substance: PANCRELIPASE AMYLASE\PANCRELIPASE LIPASE\PANCRELIPASE PROTEASE
     Dosage: CALOGEN 20 MLS BE WITH 4 SCOOPS OF CREON
  12. SALINE [SODIUM CHLORIDE] [Concomitant]
     Active Substance: SODIUM CHLORIDE
     Dosage: 4 MILLILITER, BID ( IN THE MORNING AND EVENING),NEBULISED
  13. SODIUM CHLORIDE. [Concomitant]
     Active Substance: SODIUM CHLORIDE
     Dosage: 5 MMOL/ML, BID
  14. SALBUTAMOL [Concomitant]
     Active Substance: ALBUTEROL
     Dosage: 4 TO 6 PUFFS BEFORE NEBULISED SALINE AND P
  15. TOBRAMYCIN. [Concomitant]
     Active Substance: TOBRAMYCIN
     Dosage: 300 MG, BID

REACTIONS (2)
  - Seizure [Recovered/Resolved]
  - Diarrhoea [Recovered/Resolved]

NARRATIVE: CASE EVENT DATE: 202003
